FAERS Safety Report 5563888-7 (Version None)
Quarter: 2007Q4

REPORT INFORMATION
  Report Type: 
  Country: None (occurrence: None)
  Receive Date: 20071217
  Receipt Date: 20070927
  Transmission Date: 20080405
  Serious: No
  Sender: FDA-Public Use
  Company Number: US-ASTRAZENECA-2007UW21845

PATIENT
  Age: 67 Year
  Sex: Male
  Weight: 81.6 kg

DRUGS (3)
  1. CRESTOR [Suspect]
     Indication: BLOOD CHOLESTEROL INCREASED
     Dosage: HAS BEEN TAKING FOR  2 WEEKS
  2. M.V.I. [Concomitant]
  3. CIPROFLOXACIN HCL [Concomitant]

REACTIONS (5)
  - BACK PAIN [None]
  - MYALGIA [None]
  - POLLAKIURIA [None]
  - PRURITUS [None]
  - URINE OUTPUT DECREASED [None]
